FAERS Safety Report 20057568 (Version 1)
Quarter: 2021Q4

REPORT INFORMATION
  Report Type: Spontaneous
  Country: US (occurrence: None)
  Receive Date: 20211110
  Receipt Date: 20211110
  Transmission Date: 20220303
  Serious: Yes (Hospitalization, Disabling)
  Sender: FDA-Public Use
  Company Number: None

PATIENT
  Age: 43 Year
  Sex: Female
  Weight: 63 kg

DRUGS (5)
  1. OZEMPIC [Suspect]
     Active Substance: SEMAGLUTIDE
     Indication: Glycosylated haemoglobin increased
     Dosage: OTHER QUANTITY : 1 INJECTION(S);?OTHER FREQUENCY : ONCE WEEKLY;?
     Route: 058
     Dates: start: 20210817, end: 20210907
  2. ALLERFEX [Concomitant]
  3. HYDROCORTISONE [Concomitant]
     Active Substance: HYDROCORTISONE
  4. VITAMIN E [Concomitant]
     Active Substance: .ALPHA.-TOCOPHEROL
  5. VITAMIN B12 1000MG [Concomitant]

REACTIONS (14)
  - Muscle spasms [None]
  - Abdominal pain [None]
  - Fatigue [None]
  - Initial insomnia [None]
  - Influenza like illness [None]
  - Loss of personal independence in daily activities [None]
  - Depression [None]
  - Fatigue [None]
  - Mobility decreased [None]
  - Blood creatine phosphokinase increased [None]
  - Hepatic enzyme increased [None]
  - Dysphagia [None]
  - Rhabdomyolysis [None]
  - Arthralgia [None]

NARRATIVE: CASE EVENT DATE: 20210818
